FAERS Safety Report 4431277-4 (Version None)
Quarter: 2004Q3

REPORT INFORMATION
  Report Type: 
  Country: None (occurrence: None)
  Receive Date: 20040817
  Receipt Date: 20040804
  Transmission Date: 20050211
  Serious: Yes (Hospitalization)
  Sender: FDA-Public Use
  Company Number: 238288

PATIENT
  Age: 55 Year
  Sex: Female

DRUGS (8)
  1. INSULIN ASPART [Suspect]
     Indication: DIABETES MELLITUS
     Dosage: 16 IU, SUBCUTANEOUS
     Route: 058
     Dates: start: 20040427, end: 20040723
  2. LANTUS [Concomitant]
  3. PRAVASTATIN [Concomitant]
  4. KINEDAK (EPALRESTAT) [Concomitant]
  5. METHYCOBAL (MECOBALAMIN) [Concomitant]
  6. LENDORM [Concomitant]
  7. ALOSENN (TARAXACUM OFFICINALE, SENNA LEAF, SENNA FRUIT, RUBIA ROOT TIN [Concomitant]
  8. HUMALOG [Concomitant]

REACTIONS (6)
  - ALANINE AMINOTRANSFERASE INCREASED [None]
  - ASPARTATE AMINOTRANSFERASE INCREASED [None]
  - HAEMANGIOMA OF LIVER [None]
  - HEPATIC CYST [None]
  - HEPATIC FUNCTION ABNORMAL [None]
  - LIVER FUNCTION TEST ABNORMAL [None]
